FAERS Safety Report 19399562 (Version 3)
Quarter: 2021Q3

REPORT INFORMATION
  Report Type: Spontaneous
  Country: US (occurrence: US)
  Receive Date: 20210610
  Receipt Date: 20210921
  Transmission Date: 20211014
  Serious: Yes (Hospitalization)
  Sender: FDA-Public Use
  Company Number: US-SA-2021SA190604

PATIENT
  Age: 51 Year
  Sex: Female

DRUGS (8)
  1. AUGMENTIN [Concomitant]
     Active Substance: AMOXICILLIN\CLAVULANATE POTASSIUM
  2. DUPIXENT [Suspect]
     Active Substance: DUPILUMAB
     Indication: ASTHMA
  3. FAMOTIDINE. [Concomitant]
     Active Substance: FAMOTIDINE
  4. HYDRALAZINE [Concomitant]
     Active Substance: HYDRALAZINE HYDROCHLORIDE
  5. DUPIXENT [Suspect]
     Active Substance: DUPILUMAB
     Indication: RHINITIS
     Dosage: 300 MG, QOW
     Route: 058
     Dates: start: 20200824
  6. LEVAQUIN [Concomitant]
     Active Substance: LEVOFLOXACIN
  7. RESCUE [Concomitant]
     Dosage: RELIEVER, INHALER A COUPLE TIMES PER DAY
     Route: 055
  8. FENTANYL. [Concomitant]
     Active Substance: FENTANYL

REACTIONS (6)
  - Arthralgia [Unknown]
  - Product use in unapproved indication [Unknown]
  - Retinal detachment [Unknown]
  - Impaired quality of life [Unknown]
  - Asthma [Unknown]
  - Product use issue [Unknown]

NARRATIVE: CASE EVENT DATE: 20200824
